FAERS Safety Report 4755611-0 (Version None)
Quarter: 2005Q3

REPORT INFORMATION
  Report Type: 
  Country: None (occurrence: None)
  Receive Date: 20050830
  Receipt Date: 20050601
  Transmission Date: 20060218
  Serious: No
  Sender: FDA-Public Use
  Company Number: US-BRISTOL-MYERS SQUIBB COMPANY-12989349

PATIENT
  Age: 51 Year
  Sex: Female
  Weight: 122 kg

DRUGS (6)
  1. ABILIFY [Suspect]
     Indication: FLASHBACK
     Dates: start: 20050518
  2. PAXIL [Concomitant]
  3. LEXAPRO [Concomitant]
  4. ESTROGEN PATCH [Concomitant]
  5. NEXIUM [Concomitant]
  6. THYROID TAB [Concomitant]

REACTIONS (1)
  - TREMOR [None]
